FAERS Safety Report 9408955 (Version 1)
Quarter: 2013Q3

REPORT INFORMATION
  Report Type: Spontaneous
  Country: US (occurrence: None)
  Receive Date: 20130717
  Receipt Date: 20130717
  Transmission Date: 20140515
  Serious: Yes (Hospitalization)
  Sender: FDA-Public Use
  Company Number: None

PATIENT
  Age: 75 Year
  Sex: Male
  Weight: 89 kg

DRUGS (1)
  1. HEPARIN [Suspect]
     Route: 041
     Dates: start: 20121004, end: 20121004

REACTIONS (5)
  - Abdominal distension [None]
  - Anaemia [None]
  - Drug dispensing error [None]
  - Intercepted drug administration error [None]
  - Wrong drug administered [None]
